FAERS Safety Report 16663294 (Version 1)
Quarter: 2019Q3

REPORT INFORMATION
  Report Type: Spontaneous
  Country: US (occurrence: US)
  Receive Date: 20190802
  Receipt Date: 20190802
  Transmission Date: 20191004
  Serious: No
  Sender: FDA-Public Use
  Company Number: US-EXELIXIS-CABO-19020431

PATIENT

DRUGS (2)
  1. CABOMETYX [Suspect]
     Active Substance: CABOZANTINIB S-MALATE
     Indication: HEPATOCELLULAR CARCINOMA
     Dosage: 20 MG, UNK
  2. CABOMETYX [Suspect]
     Active Substance: CABOZANTINIB S-MALATE
     Dosage: 40 MG, UNK

REACTIONS (2)
  - Blood pressure systolic abnormal [Unknown]
  - Metastases to lung [Unknown]
